FAERS Safety Report 5332038-4 (Version None)
Quarter: 2007Q2

REPORT INFORMATION
  Report Type: 
  Country: None (occurrence: None)
  Receive Date: 20070523
  Receipt Date: 20070516
  Transmission Date: 20071010
  Serious: Yes (Life-Threatening)
  Sender: FDA-Public Use
  Company Number: PHEH2007US05969

PATIENT
  Age: 73 Year
  Sex: Female

DRUGS (2)
  1. ZELNORM [Suspect]
     Indication: IRRITABLE BOWEL SYNDROME
     Route: 048
  2. AMITIZA [Suspect]

REACTIONS (3)
  - CARDIOVERSION [None]
  - HEART RATE DECREASED [None]
  - HEART RATE INCREASED [None]
